FAERS Safety Report 7562340-7 (Version None)
Quarter: 2011Q2

REPORT INFORMATION
  Report Type: 
  Country: None (occurrence: None)
  Receive Date: 20110622
  Receipt Date: 20110613
  Transmission Date: 20111010
  Serious: Yes (Other)
  Sender: FDA-Public Use
  Company Number: HR-JNJFOC-20110508278

PATIENT
  Age: 4 Decade
  Sex: Female

DRUGS (4)
  1. CLOZAPINE [Suspect]
     Indication: SCHIZOPHRENIA
     Route: 065
  2. RISPERIDONE [Suspect]
     Indication: SCHIZOPHRENIA
     Route: 030
     Dates: start: 20060621
  3. ZOLOFT [Suspect]
     Indication: SCHIZOPHRENIA
     Route: 065
  4. RISPERIDONE [Suspect]
     Indication: SCHIZOPHRENIA
     Route: 048
     Dates: start: 20040101, end: 20060101

REACTIONS (6)
  - DRUG INEFFECTIVE [None]
  - AMENORRHOEA [None]
  - PSYCHOMOTOR SKILLS IMPAIRED [None]
  - TREATMENT NONCOMPLIANCE [None]
  - DROOLING [None]
  - DEPRESSION [None]
